FAERS Safety Report 16082912 (Version 2)
Quarter: 2019Q2

REPORT INFORMATION
  Report Type: Spontaneous
  Country: US (occurrence: US)
  Receive Date: 20190318
  Receipt Date: 20190429
  Transmission Date: 20190711
  Serious: No
  Sender: FDA-Public Use
  Company Number: US-ALK-ABELLO A/S-2019AA000358

PATIENT

DRUGS (2)
  1. ODACTRA [Suspect]
     Active Substance: DERMATOPHAGOIDES FARINAE\DERMATOPHAGOIDES PTERONYSSINUS
     Indication: MITE ALLERGY
     Dosage: UNK
     Dates: start: 20181218, end: 20190107
  2. ODACTRA [Suspect]
     Active Substance: DERMATOPHAGOIDES FARINAE\DERMATOPHAGOIDES PTERONYSSINUS
     Dosage: UNK
     Dates: start: 20190114, end: 20190124

REACTIONS (9)
  - Oral pruritus [Recovered/Resolved]
  - Throat irritation [Unknown]
  - Pregnancy [Unknown]
  - Tongue oedema [Recovered/Resolved]
  - Mouth swelling [Recovered/Resolved]
  - Chest pain [Unknown]
  - Inappropriate schedule of product administration [Recovered/Resolved]
  - Tongue pruritus [Recovered/Resolved]
  - Influenza like illness [Unknown]

NARRATIVE: CASE EVENT DATE: 20181218
